FAERS Safety Report 11054202 (Version 1)
Quarter: 2015Q2

REPORT INFORMATION
  Report Type: Spontaneous
  Country: JP (occurrence: JP)
  Receive Date: 20150422
  Receipt Date: 20150422
  Transmission Date: 20150821
  Serious: Yes (Death, Hospitalization, Other)
  Sender: FDA-Public Use
  Company Number: JP-ACCORD-030141

PATIENT
  Age: 71 Year
  Sex: Male

DRUGS (6)
  1. CISPLATIN. [Suspect]
     Active Substance: CISPLATIN
     Indication: BILE DUCT CANCER
  2. AMLODIPINE [Concomitant]
     Active Substance: AMLODIPINE BESYLATE
     Indication: HYPERTENSION
  3. DEXAMETHASONE. [Concomitant]
     Active Substance: DEXAMETHASONE
  4. APREPITANT. [Concomitant]
     Active Substance: APREPITANT
     Indication: VOMITING
  5. PALONOSETRON/PALONOSETRON HYDROCHLORIDE [Concomitant]
     Indication: VOMITING
  6. GEMCITABINE/GEMCITABINE HYDROCHLORIDE [Suspect]
     Active Substance: GEMCITABINE\GEMCITABINE HYDROCHLORIDE
     Indication: BILE DUCT CANCER

REACTIONS (6)
  - White blood cell count increased [Unknown]
  - C-reactive protein increased [Unknown]
  - Hepatic enzyme increased [Unknown]
  - Colitis ischaemic [Unknown]
  - General physical health deterioration [None]
  - Renal failure [Fatal]
